FAERS Safety Report 4499695-6 (Version None)
Quarter: 2004Q4

REPORT INFORMATION
  Report Type: 
  Country: None (occurrence: None)
  Receive Date: 20041108
  Receipt Date: 20041029
  Transmission Date: 20050328
  Serious: Yes (Life-Threatening)
  Sender: FDA-Public Use
  Company Number: 2004AP05551

PATIENT
  Age: 47 Year
  Sex: Male

DRUGS (2)
  1. CARBOCAIN [Suspect]
     Indication: LOCAL ANAESTHESIA
     Dosage: 60 MG DAILY PNEU
  2. ANABOLIC STEROID [Concomitant]

REACTIONS (7)
  - APHAGIA [None]
  - DYSPNOEA [None]
  - PROCEDURAL COMPLICATION [None]
  - RADICULAR PAIN [None]
  - RESTLESSNESS [None]
  - SOFT TISSUE HAEMORRHAGE [None]
  - TRACHEAL STENOSIS [None]
